FAERS Safety Report 24206886 (Version 1)
Quarter: 2024Q3

REPORT INFORMATION
  Report Type: Spontaneous
  Country: US (occurrence: US)
  Receive Date: 20240813
  Receipt Date: 20240813
  Transmission Date: 20241016
  Serious: Yes (Other)
  Sender: MERCK
  Company Number: US-009507513-2407USA015494

PATIENT
  Sex: Male

DRUGS (4)
  1. KEYTRUDA [Suspect]
     Active Substance: PEMBROLIZUMAB
     Indication: Bladder cancer stage IV
     Dosage: DOSE FREQUENCY REPORTED AS: 100MG/4ML
  2. PADCEV [Suspect]
     Active Substance: ENFORTUMAB VEDOTIN-EJFV
     Indication: Bladder cancer stage IV
     Dosage: 30 MG, UNKNOWN
  3. MILK THISTLE [BETA VULGARIS EXTRACT;CYNARA CARDUNCULUS EXTRACT;LEONURU [Concomitant]
  4. OZONE [Concomitant]
     Active Substance: OZONE

REACTIONS (1)
  - Renal disorder [Recovering/Resolving]
